FAERS Safety Report 7507980-6 (Version None)
Quarter: 2011Q2

REPORT INFORMATION
  Report Type: 
  Country: None (occurrence: None)
  Receive Date: 20110527
  Receipt Date: 20110519
  Transmission Date: 20111010
  Serious: Yes (Hospitalization)
  Sender: FDA-Public Use
  Company Number: US-JNJFOC-20110510247

PATIENT
  Age: 22 Year
  Sex: Female

DRUGS (6)
  1. DEPO-PROVERA [Concomitant]
     Indication: CONVULSION
  2. TOPAMAX [Suspect]
     Indication: EPILEPSY
     Route: 048
  3. DEPO-PROVERA [Concomitant]
     Indication: CONTRACEPTION
  4. LEXAPRO [Concomitant]
     Route: 048
  5. AXERT [Concomitant]
  6. TOPAMAX [Suspect]
     Route: 048
     Dates: start: 20070101

REACTIONS (6)
  - DEPRESSION [None]
  - PARAESTHESIA [None]
  - MIGRAINE [None]
  - AURA [None]
  - HYPOAESTHESIA [None]
  - ANXIETY [None]
